FAERS Safety Report 19493895 (Version 4)
Quarter: 2022Q3

REPORT INFORMATION
  Report Type: Spontaneous
  Country: CL (occurrence: CL)
  Receive Date: 20210705
  Receipt Date: 20220713
  Transmission Date: 20221027
  Serious: Yes (Hospitalization, Other)
  Sender: FDA-Public Use
  Company Number: CL-GLAXOSMITHKLINE-CL2021AMR141797

PATIENT

DRUGS (2)
  1. NUCALA [Suspect]
     Active Substance: MEPOLIZUMAB
     Indication: Asthma
     Dosage: 10 MG Z (PER MONTH)
     Route: 058
     Dates: start: 20200101, end: 20210101
  2. OXYGEN [Concomitant]
     Active Substance: OXYGEN
     Indication: Bronchitis
     Dosage: UNK

REACTIONS (9)
  - Bronchitis [Recovered/Resolved]
  - Asthmatic crisis [Not Recovered/Not Resolved]
  - Respiratory disorder [Unknown]
  - Pneumonia [Unknown]
  - Dyspnoea [Unknown]
  - Cardiac murmur [Unknown]
  - Fatigue [Unknown]
  - Nasal polyps [Unknown]
  - Product use in unapproved indication [Unknown]

NARRATIVE: CASE EVENT DATE: 20210601
